FAERS Safety Report 9912757 (Version 1)
Quarter: 2014Q1

REPORT INFORMATION
  Report Type: Spontaneous
  Country: GB (occurrence: None)
  Receive Date: 20140212
  Receipt Date: 20140212
  Transmission Date: 20141002
  Serious: Yes (Hospitalization, Other)
  Sender: FDA-Public Use
  Company Number: SYM-2014-17130

PATIENT
  Age: 47 Year
  Sex: Female

DRUGS (1)
  1. METRONIDAZOLE [Suspect]
     Indication: BACK PAIN
     Dates: start: 20140121, end: 20140121

REACTIONS (8)
  - Pharyngeal oedema [None]
  - Swollen tongue [None]
  - Dyspnoea [None]
  - Pruritus generalised [None]
  - Vomiting [None]
  - Diarrhoea [None]
  - Proctalgia [None]
  - Abdominal pain lower [None]
